FAERS Safety Report 7265272-7 (Version None)
Quarter: 2011Q1

REPORT INFORMATION
  Report Type: 
  Country: None (occurrence: None)
  Receive Date: 20110131
  Receipt Date: 20110120
  Transmission Date: 20110831
  Serious: Yes (Other)
  Sender: FDA-Public Use
  Company Number: US-SANOFI-AVENTIS-2010SA076905

PATIENT
  Age: 77 Year
  Sex: Male
  Weight: 82 kg

DRUGS (5)
  1. DIOVAN HCT [Concomitant]
  2. ZYRTEC [Concomitant]
  3. PLAVIX [Suspect]
     Indication: STENT PLACEMENT
     Route: 048
     Dates: start: 20080318, end: 20101012
  4. PLAVIX [Suspect]
     Route: 048
     Dates: start: 20080318, end: 20101012
  5. LIPITOR [Concomitant]

REACTIONS (8)
  - MEMORY IMPAIRMENT [None]
  - BLOOD PRESSURE ABNORMAL [None]
  - HEART RATE INCREASED [None]
  - ATRIAL FIBRILLATION [None]
  - CONTUSION [None]
  - HAEMORRHAGE [None]
  - BRADYCARDIA [None]
  - CONFUSIONAL STATE [None]
